FAERS Safety Report 17601704 (Version 7)
Quarter: 2020Q2

REPORT INFORMATION
  Report Type: Report from Study
  Country: US (occurrence: US)
  Receive Date: 20200330
  Receipt Date: 20200604
  Transmission Date: 20200713
  Serious: Yes (Death, Hospitalization)
  Sender: FDA-Public Use
  Company Number: US-ACTELION-A-NJ2019-185436

PATIENT
  Age: 63 Year
  Sex: Male
  Weight: 63.49 kg

DRUGS (8)
  1. MYCOPHENOLATE [Concomitant]
     Active Substance: MYCOPHENOLIC ACID
     Dosage: 360 MG, BID
  2. SILDENAFIL. [Concomitant]
     Active Substance: SILDENAFIL
     Dosage: 20 MG, TID
     Route: 048
  3. NIFEDIPINE. [Concomitant]
     Active Substance: NIFEDIPINE
     Dosage: 30 MG, QD
     Route: 048
  4. LASIX [Concomitant]
     Active Substance: FUROSEMIDE
  5. OPSUMIT [Suspect]
     Active Substance: MACITENTAN
     Indication: PULMONARY HYPERTENSION
     Dosage: 10 MG, QD
     Route: 048
     Dates: start: 20160324
  6. ELIQUIS [Concomitant]
     Active Substance: APIXABAN
  7. ALLOPURINOL. [Concomitant]
     Active Substance: ALLOPURINOL
  8. REMODULIN [Concomitant]
     Active Substance: TREPROSTINIL

REACTIONS (14)
  - Death [Fatal]
  - Mental status changes [Unknown]
  - Dialysis [Unknown]
  - Epistaxis [Unknown]
  - Abdominal distension [Unknown]
  - Respiratory distress [Unknown]
  - Laboratory test abnormal [Unknown]
  - Blood pressure abnormal [Unknown]
  - Renal failure [Unknown]
  - Oxygen consumption increased [Unknown]
  - Paracentesis [Unknown]
  - Hospitalisation [Unknown]
  - Oxygen saturation decreased [Unknown]
  - Gout [Not Recovered/Not Resolved]

NARRATIVE: CASE EVENT DATE: 20200507
